FAERS Safety Report 8540625-5 (Version None)
Quarter: 2012Q3

REPORT INFORMATION
  Report Type: 
  Country: None (occurrence: None)
  Receive Date: 20120713
  Receipt Date: 20100419
  Transmission Date: 20120928
  Serious: Yes (Hospitalization)
  Sender: FDA-Public Use
  Company Number: 2010AP000808

PATIENT
  Age: 55 Year
  Sex: Female

DRUGS (5)
  1. RISPERIDONE [Suspect]
     Indication: PSYCHOTIC DISORDER
     Dosage: 2 MG, PO
     Route: 048
     Dates: start: 20040101
  2. RISPERIDONE [Concomitant]
  3. SIMVASTATIN [Concomitant]
  4. CITALOPRAM HYDROBROMIDE [Concomitant]
  5. ANTIPSYCHOTICS [Concomitant]

REACTIONS (1)
  - DEEP VEIN THROMBOSIS [None]
